FAERS Safety Report 14608435 (Version 2)
Quarter: 2018Q2

REPORT INFORMATION
  Report Type: Report from Study
  Country: JP (occurrence: JP)
  Receive Date: 20180307
  Receipt Date: 20180425
  Transmission Date: 20180711
  Serious: Yes (Death, Hospitalization, Other)
  Sender: FDA-Public Use
  Company Number: JP-009507513-1802JPN003459J

PATIENT
  Age: 67 Year
  Sex: Male
  Weight: 74 kg

DRUGS (4)
  1. RANMARK [Concomitant]
     Active Substance: DENOSUMAB
     Indication: METASTASES TO BONE
     Dosage: 120 MG, UNK
     Route: 051
     Dates: start: 20180112
  2. CALCIUM L-ASPARTATE [Concomitant]
     Indication: OSTEOPOROSIS
     Dosage: 400 MG, TID
     Route: 048
     Dates: start: 20180112
  3. PEMBROLIZUMAB. [Suspect]
     Active Substance: PEMBROLIZUMAB
     Indication: TRANSITIONAL CELL CARCINOMA
     Dosage: 200 MG, UNK
     Route: 041
     Dates: start: 20180123, end: 20180123
  4. EDIROL [Concomitant]
     Active Substance: ELDECALCITOL
     Indication: OSTEOPOROSIS
     Dosage: 0.75 MICROGRAM, QD
     Route: 048
     Dates: start: 20180112

REACTIONS (1)
  - Malignant ascites [Fatal]

NARRATIVE: CASE EVENT DATE: 20180204
